FAERS Safety Report 11324513 (Version 1)
Quarter: 2015Q3

REPORT INFORMATION
  Report Type: Spontaneous
  Country: US (occurrence: US)
  Receive Date: 20150730
  Receipt Date: 20150730
  Transmission Date: 20151125
  Serious: Yes (Hospitalization)
  Sender: FDA-Public Use
  Company Number: US-ASTRAZENECA-2015SE72256

PATIENT
  Sex: Male
  Weight: 84 kg

DRUGS (7)
  1. ZIPRASIDONE. [Suspect]
     Active Substance: ZIPRASIDONE
     Indication: BIPOLAR DISORDER
     Route: 048
  2. CIALIS [Concomitant]
     Active Substance: TADALAFIL
  3. SEROQUEL [Suspect]
     Active Substance: QUETIAPINE FUMARATE
     Indication: INSOMNIA
     Route: 048
  4. ZIPRASIDONE. [Suspect]
     Active Substance: ZIPRASIDONE
     Indication: BIPOLAR DISORDER
     Route: 048
  5. ZIPRASIDONE. [Suspect]
     Active Substance: ZIPRASIDONE
     Indication: BIPOLAR DISORDER
     Route: 048
  6. ZIPRASIDONE. [Suspect]
     Active Substance: ZIPRASIDONE
     Indication: BIPOLAR DISORDER
     Route: 048
     Dates: start: 201309, end: 2015
  7. HALOPERIDOL. [Concomitant]
     Active Substance: HALOPERIDOL

REACTIONS (20)
  - Insomnia [Not Recovered/Not Resolved]
  - Musculoskeletal chest pain [Unknown]
  - Constipation [Unknown]
  - Anxiety [Unknown]
  - Speech disorder [Unknown]
  - Hallucinations, mixed [Unknown]
  - Back pain [Not Recovered/Not Resolved]
  - Drug ineffective [Unknown]
  - Night sweats [Unknown]
  - Chest pain [Not Recovered/Not Resolved]
  - Delirium [Unknown]
  - Communication disorder [Unknown]
  - Fear [Unknown]
  - Pyrexia [Unknown]
  - Erectile dysfunction [Not Recovered/Not Resolved]
  - Restlessness [Unknown]
  - Memory impairment [Unknown]
  - Confusional state [Unknown]
  - Pelvic pain [Unknown]
  - Intentional product misuse [Unknown]
